FAERS Safety Report 14209222 (Version 8)
Quarter: 2018Q4

REPORT INFORMATION
  Report Type: Report from Study
  Country: CA (occurrence: CA)
  Receive Date: 20171121
  Receipt Date: 20181231
  Transmission Date: 20190204
  Serious: Yes (Other)
  Sender: FDA-Public Use
  Company Number: CA-BRISTOL-MYERS SQUIBB COMPANY-BMS-2016-028986

PATIENT
  Age: 24 Year
  Sex: Female

DRUGS (3)
  1. ABATACEPT [Suspect]
     Active Substance: ABATACEPT
     Indication: RHEUMATOID ARTHRITIS
     Dosage: 500 MG, Q4WK
     Route: 042
     Dates: start: 20150709
  2. MELOXICAM. [Concomitant]
     Active Substance: MELOXICAM
     Indication: PRODUCT USED FOR UNKNOWN INDICATION
     Route: 065
  3. DEPO-PROVERA [Concomitant]
     Active Substance: MEDROXYPROGESTERONE ACETATE
     Indication: PRODUCT USED FOR UNKNOWN INDICATION
     Route: 065

REACTIONS (19)
  - Tympanic membrane perforation [Unknown]
  - Ear infection [Recovered/Resolved]
  - Fatigue [Unknown]
  - Otorrhoea [Unknown]
  - Headache [Unknown]
  - Mouth ulceration [Unknown]
  - Productive cough [Not Recovered/Not Resolved]
  - Skin infection [Recovered/Resolved]
  - Cough [Recovering/Resolving]
  - Pain in jaw [Unknown]
  - Bronchitis [Unknown]
  - Aphonia [Not Recovered/Not Resolved]
  - Nasopharyngitis [Recovering/Resolving]
  - Hyperthermia [Unknown]
  - Nausea [Unknown]
  - Pyrexia [Recovered/Resolved]
  - Foot fracture [Recovering/Resolving]
  - Ligament sprain [Recovering/Resolving]
  - Oedema peripheral [Not Recovered/Not Resolved]

NARRATIVE: CASE EVENT DATE: 201604
